FAERS Safety Report 10704749 (Version 2)
Quarter: 2014Q4

REPORT INFORMATION
  Report Type: Spontaneous
  Country: US (occurrence: US)
  Receive Date: 20141103
  Receipt Date: 20141103
  Transmission Date: 20150529
  Serious: Yes (Other)
  Sender: FDA-Public Use
  Company Number: US-APOTEX-2014AP003068

PATIENT
  Age: 50 Year
  Sex: Female

DRUGS (8)
  1. PAROXETINE HYDROCHLORIDE. [Suspect]
     Active Substance: PAROXETINE HYDROCHLORIDE
     Indication: POST-TRAUMATIC STRESS DISORDER
     Dosage: 5 MG, UNK
     Route: 065
  2. LORAZEPAM. [Suspect]
     Active Substance: LORAZEPAM
     Indication: POST-TRAUMATIC STRESS DISORDER
     Route: 065
  3. CITALOPRAM [Suspect]
     Active Substance: CITALOPRAM HYDROBROMIDE
     Indication: POST-TRAUMATIC STRESS DISORDER
     Route: 065
  4. MIRTAZAPINE. [Suspect]
     Active Substance: MIRTAZAPINE
     Indication: INSOMNIA
  5. BUPROPION [Concomitant]
     Active Substance: BUPROPION
     Indication: POST-TRAUMATIC STRESS DISORDER
     Route: 065
  6. SERTRALINE HYDROCHLORIDE. [Suspect]
     Active Substance: SERTRALINE HYDROCHLORIDE
     Indication: POST-TRAUMATIC STRESS DISORDER
     Route: 065
  7. MIRTAZAPINE. [Suspect]
     Active Substance: MIRTAZAPINE
     Indication: TACHYCARDIA
     Route: 065
  8. FLUOXETINE [Concomitant]
     Active Substance: FLUOXETINE\FLUOXETINE HYDROCHLORIDE
     Indication: PRODUCT USED FOR UNKNOWN INDICATION
     Route: 065

REACTIONS (16)
  - Night sweats [Unknown]
  - Central obesity [Recovered/Resolved]
  - Anxiety [Recovered/Resolved]
  - Tachycardia [Unknown]
  - Weight increased [Recovered/Resolved]
  - Homicidal ideation [Recovered/Resolved]
  - Depressive symptom [Recovered/Resolved]
  - Loss of libido [Recovered/Resolved]
  - Suicidal ideation [Recovered/Resolved]
  - Intentional product misuse [Recovered/Resolved]
  - Fatigue [Unknown]
  - Agitation [Recovered/Resolved]
  - Constipation [Recovered/Resolved]
  - Motor dysfunction [Unknown]
  - Somnolence [Unknown]
  - Insomnia [Recovered/Resolved]
